FAERS Safety Report 10547996 (Version 1)
Quarter: 2014Q4

REPORT INFORMATION
  Report Type: Spontaneous
  Country: US (occurrence: None)
  Receive Date: 20141027
  Receipt Date: 20141027
  Transmission Date: 20150529
  Serious: Yes (Other)
  Sender: FDA-Public Use
  Company Number: None

PATIENT
  Age: 8 Year
  Sex: Male
  Weight: 28.2 kg

DRUGS (11)
  1. PREVACID [Concomitant]
     Active Substance: LANSOPRAZOLE
  2. NEURONTIN [Concomitant]
     Active Substance: GABAPENTIN
  3. NORVASC [Concomitant]
     Active Substance: AMLODIPINE BESYLATE
  4. EXJADE [Suspect]
     Active Substance: DEFERASIROX
     Route: 048
  5. EXJADE [Suspect]
     Active Substance: DEFERASIROX
     Route: 048
     Dates: start: 20140815
  6. KEPPRA XR [Suspect]
     Active Substance: LEVETIRACETAM
  7. VITAMIN B6 [Concomitant]
     Active Substance: PYRIDOXINE HYDROCHLORIDE
  8. SINGULAIR [Concomitant]
     Active Substance: MONTELUKAST SODIUM
  9. VIMPAT [Concomitant]
     Active Substance: LACOSAMIDE
  10. CLARITIN [Concomitant]
     Active Substance: LORATADINE
  11. DIMETAPP DM [Concomitant]

REACTIONS (1)
  - Polydipsia [None]

NARRATIVE: CASE EVENT DATE: 201410
